FAERS Safety Report 9188065 (Version 1)
Quarter: 2013Q1

REPORT INFORMATION
  Report Type: Report from Study
  Country: JP (occurrence: JP)
  Receive Date: 20130325
  Receipt Date: 20130325
  Transmission Date: 20140127
  Serious: Yes (Hospitalization)
  Sender: FDA-Public Use
  Company Number: JP-VIIV HEALTHCARE LIMITED-B0873336A

PATIENT
  Age: 4 Decade
  Sex: Male

DRUGS (5)
  1. LEXIVA [Suspect]
     Indication: HIV INFECTION
     Dosage: 1400MG PER DAY
     Route: 048
     Dates: start: 20090205, end: 20100902
  2. LEXIVA [Suspect]
     Indication: HIV INFECTION
     Dosage: 1400MG PER DAY
     Route: 048
     Dates: start: 20100913, end: 20101014
  3. NORVIR [Suspect]
     Indication: HIV INFECTION
     Route: 048
     Dates: start: 20090205, end: 20101014
  4. PREZISTA [Suspect]
     Indication: HIV INFECTION
     Route: 048
     Dates: start: 20100903, end: 20100912
  5. TRUVADA [Concomitant]
     Indication: HIV INFECTION
     Route: 048
     Dates: start: 20090205, end: 20101014

REACTIONS (6)
  - Keratitis [Recovering/Resolving]
  - Abdominal discomfort [Recovering/Resolving]
  - Rash [Recovered/Resolved]
  - Diarrhoea [Recovering/Resolving]
  - Herpes zoster [Recovering/Resolving]
  - Beta 2 microglobulin urine increased [Unknown]
